FAERS Safety Report 18663180 (Version 1)
Quarter: 2020Q4

REPORT INFORMATION
  Report Type: Report from Study
  Country: CN (occurrence: CN)
  Receive Date: 20201224
  Receipt Date: 20201224
  Transmission Date: 20210114
  Serious: Yes (Death)
  Sender: FDA-Public Use
  Company Number: CN-GLAXOSMITHKLINE-CN2020GSK251843

PATIENT
  Age: 43 Year
  Sex: Female
  Weight: 53.8 kg

DRUGS (2)
  1. HX008 [Suspect]
     Active Substance: INVESTIGATIONAL PRODUCT
     Indication: BREAST CANCER METASTATIC
     Dosage: 200 MG
     Route: 042
     Dates: start: 20200917, end: 20201120
  2. NIRAPARIB [Suspect]
     Active Substance: NIRAPARIB
     Indication: BREAST CANCER METASTATIC
     Dosage: 200 MG, QD
     Route: 048
     Dates: start: 20200917, end: 20201120

REACTIONS (1)
  - Death [Fatal]

NARRATIVE: CASE EVENT DATE: 20201214
